FAERS Safety Report 7691522-9 (Version None)
Quarter: 2011Q3

REPORT INFORMATION
  Report Type: 
  Country: None (occurrence: None)
  Receive Date: 20110818
  Receipt Date: 20100607
  Transmission Date: 20111222
  Serious: Yes (Death, Hospitalization)
  Sender: FDA-Public Use
  Company Number: DE-UCBSA-005234

PATIENT
  Sex: Male
  Weight: 82 kg

DRUGS (1)
  1. CERTOLIZUMAB PEGOL [Suspect]
     Indication: RHEUMATOID ARTHRITIS
     Dosage: EVERY TWO WEEKS  - TOTAL 7 DOSES
     Route: 058
     Dates: start: 20091015, end: 20091215

REACTIONS (2)
  - LARGE INTESTINE PERFORATION [None]
  - DIVERTICULITIS [None]
